FAERS Safety Report 20953889 (Version 2)
Quarter: 2022Q2

REPORT INFORMATION
  Report Type: Report from Study
  Country: BD (occurrence: BD)
  Receive Date: 20220614
  Receipt Date: 20220617
  Transmission Date: 20220721
  Serious: Yes (Death)
  Sender: FDA-Public Use
  Company Number: BD-NOVARTISPH-NVSC2022BD135417

PATIENT
  Age: 74 Year
  Sex: Female
  Weight: 65 kg

DRUGS (2)
  1. EXELON [Suspect]
     Active Substance: RIVASTIGMINE TARTRATE
     Indication: Dementia
     Dosage: 13.3 MG, QD (PATCH 15 (CM2), 27 MG RIVASTIGMINE BASE)
     Route: 065
     Dates: start: 2018
  2. INSULIN NOS [Concomitant]
     Active Substance: INSULIN NOS
     Indication: Diabetes mellitus
     Dosage: UNK
     Route: 065

REACTIONS (1)
  - Cerebrovascular accident [Fatal]

NARRATIVE: CASE EVENT DATE: 20220527
